FAERS Safety Report 4543301-9 (Version None)
Quarter: 2004Q4

REPORT INFORMATION
  Report Type: 
  Country: None (occurrence: None)
  Receive Date: 20041229
  Receipt Date: 20041221
  Transmission Date: 20050328
  Serious: No
  Sender: FDA-Public Use
  Company Number: 2004AP06414

PATIENT
  Age: 80 Year
  Sex: Male

DRUGS (6)
  1. ZOLADEX [Suspect]
     Indication: PROSTATE CANCER
     Dosage: 10,8 MG Q3MO SQ
     Dates: start: 20040406
  2. THEO-DUR [Concomitant]
  3. PREDONINE [Concomitant]
  4. SEDIEL [Concomitant]
  5. GASTER [Concomitant]
  6. SENNOSIDE [Concomitant]

REACTIONS (2)
  - ASTHMA [None]
  - CONDITION AGGRAVATED [None]
